FAERS Safety Report 8083256-6 (Version None)
Quarter: 2012Q1

REPORT INFORMATION
  Report Type: 
  Country: None (occurrence: None)
  Receive Date: 20120127
  Receipt Date: 20110303
  Transmission Date: 20120608
  Serious: No
  Sender: FDA-Public Use
  Company Number: US-ABBOTT-11P-163-0709331-00

PATIENT
  Sex: Female
  Weight: 119.4 kg

DRUGS (14)
  1. TRIAMTERENE AND HYDROCHLOROTHIAZIDE [Concomitant]
     Indication: HYPERTENSION
     Dosage: 37.5/25 MG
  2. TRICOR [Concomitant]
     Indication: BLOOD CHOLESTEROL INCREASED
  3. HUMIRA [Suspect]
     Indication: PSORIATIC ARTHROPATHY
     Route: 058
     Dates: start: 20101116, end: 20101221
  4. METHOTREXATE [Suspect]
     Indication: RHEUMATOID ARTHRITIS
     Dosage: 6 PILLS
     Dates: end: 20100921
  5. SULFASALAZINE [Concomitant]
     Indication: RHEUMATOID ARTHRITIS
  6. ATENOLOL [Concomitant]
     Indication: HYPERTENSION
  7. METFORMIN HCL [Concomitant]
     Indication: DIABETES MELLITUS
  8. EYE DROPS [Concomitant]
     Indication: DRY EYE
  9. METHOTREXATE [Suspect]
     Indication: REITER'S SYNDROME
  10. SULFASALAZINE [Concomitant]
     Indication: PSORIATIC ARTHROPATHY
  11. HUMIRA [Suspect]
     Indication: RHEUMATOID ARTHRITIS
     Route: 058
     Dates: start: 20100801, end: 20100921
  12. HUMIRA [Suspect]
     Indication: REITER'S SYNDROME
     Route: 058
     Dates: start: 20110302
  13. METHOTREXATE [Suspect]
     Indication: PSORIATIC ARTHROPATHY
  14. XANAX [Concomitant]
     Indication: ANXIETY

REACTIONS (8)
  - INJECTION SITE PAIN [None]
  - ASTHMA [None]
  - PAINFUL RESPIRATION [None]
  - DYSPNOEA [None]
  - PYREXIA [None]
  - HEPATIC ENZYME INCREASED [None]
  - PNEUMONIA [None]
  - BRONCHITIS [None]
